FAERS Safety Report 9278716 (Version 1)
Quarter: 2013Q2

REPORT INFORMATION
  Report Type: Spontaneous
  Country: US (occurrence: US)
  Receive Date: 20130508
  Receipt Date: 20130508
  Transmission Date: 20140414
  Serious: Yes (Hospitalization)
  Sender: FDA-Public Use
  Company Number: US-ASTRAZENECA-2013SE30252

PATIENT
  Age: 66 Year
  Sex: Male

DRUGS (2)
  1. BRILINTA [Suspect]
     Route: 048
     Dates: start: 201304, end: 20130429
  2. ASPIRIN [Concomitant]

REACTIONS (1)
  - Gastrointestinal haemorrhage [Not Recovered/Not Resolved]
